FAERS Safety Report 18371672 (Version 2)
Quarter: 2020Q4

REPORT INFORMATION
  Report Type: Spontaneous
  Country: CA (occurrence: CA)
  Receive Date: 20201012
  Receipt Date: 20201015
  Transmission Date: 20210114
  Serious: Yes (Other)
  Sender: FDA-Public Use
  Company Number: CA-JNJFOC-20201002237

PATIENT
  Age: 43 Year
  Sex: Male
  Weight: 101 kg

DRUGS (10)
  1. AMLODIPINE [Concomitant]
     Active Substance: AMLODIPINE BESYLATE
     Route: 065
  2. IBUPROFEN. [Concomitant]
     Active Substance: IBUPROFEN
  3. INFLIXIMAB, RECOMBINANT [Suspect]
     Active Substance: INFLIXIMAB
     Indication: CROHN^S DISEASE
     Route: 042
  4. AZATHIOPRINE. [Concomitant]
     Active Substance: AZATHIOPRINE
     Route: 048
  5. METHYLPREDNISOLONE. [Concomitant]
     Active Substance: METHYLPREDNISOLONE
     Route: 042
  6. METRONIDAZOLE. [Concomitant]
     Active Substance: METRONIDAZOLE
  7. PREDNISONE. [Concomitant]
     Active Substance: PREDNISONE
  8. CIPRO [Concomitant]
     Active Substance: CIPROFLOXACIN HYDROCHLORIDE
  9. HUMIRA [Suspect]
     Active Substance: ADALIMUMAB
     Indication: CROHN^S DISEASE
     Route: 058
  10. SOLU-MEDROL [Concomitant]
     Active Substance: METHYLPREDNISOLONE SODIUM SUCCINATE
     Route: 042

REACTIONS (14)
  - Therapeutic response shortened [Unknown]
  - Malaise [Unknown]
  - Abdominal tenderness [Unknown]
  - Food intolerance [Unknown]
  - Crohn^s disease [Unknown]
  - Abdominal distension [Unknown]
  - Gastrointestinal stoma output decreased [Unknown]
  - Pyrexia [Unknown]
  - Gastrointestinal obstruction [Unknown]
  - Gastroenterostomy [Unknown]
  - Therapeutic product effect decreased [Unknown]
  - Abdominal pain [Unknown]
  - Constipation [Unknown]
  - Frequent bowel movements [Unknown]
